FAERS Safety Report 10219941 (Version 1)
Quarter: 2014Q2

REPORT INFORMATION
  Report Type: Spontaneous
  Country: AU (occurrence: AU)
  Receive Date: 20140605
  Receipt Date: 20140605
  Transmission Date: 20141212
  Serious: Yes (Other)
  Sender: FDA-Public Use
  Company Number: AU-MYLANLABS-2014S1012254

PATIENT
  Sex: Male

DRUGS (1)
  1. DENPAX [Suspect]
     Indication: BACK PAIN
     Dates: start: 20140522

REACTIONS (2)
  - Dissociation [Not Recovered/Not Resolved]
  - Drug withdrawal headache [Not Recovered/Not Resolved]
